FAERS Safety Report 19361161 (Version 1)
Quarter: 2021Q2

REPORT INFORMATION
  Report Type: Report from Study
  Country: CO (occurrence: CO)
  Receive Date: 20210603
  Receipt Date: 20210603
  Transmission Date: 20210717
  Serious: Yes (Hospitalization, Other)
  Sender: FDA-Public Use
  Company Number: CO-SA-2021SA105189

PATIENT
  Age: 34 Year
  Sex: Female

DRUGS (1)
  1. ALEMTUZUMAB [Suspect]
     Active Substance: ALEMTUZUMAB
     Indication: MULTIPLE SCLEROSIS
     Dosage: 12 MG
     Route: 040
     Dates: start: 20190201

REACTIONS (8)
  - Headache [Recovering/Resolving]
  - Herpes zoster [Recovering/Resolving]
  - Immune thrombocytopenia [Not Recovered/Not Resolved]
  - Gingival bleeding [Recovering/Resolving]
  - Platelet count decreased [Recovering/Resolving]
  - Asthenia [Recovering/Resolving]
  - Rash [Recovering/Resolving]
  - Inflammation [Recovering/Resolving]

NARRATIVE: CASE EVENT DATE: 20190301
